FAERS Safety Report 4620714-8 (Version None)
Quarter: 2005Q1

REPORT INFORMATION
  Report Type: 
  Country: None (occurrence: None)
  Receive Date: 20050328
  Receipt Date: 20050104
  Transmission Date: 20050727
  Serious: Yes (Hospitalization)
  Sender: FDA-Public Use
  Company Number: FRWYE539527JAN04

PATIENT
  Sex: Male
  Weight: 75 kg

DRUGS (4)
  1. ENBREL [Suspect]
     Indication: RHEUMATOID ARTHRITIS
     Route: 058
     Dates: start: 20030625, end: 20031115
  2. NOVATREX [Suspect]
     Indication: RHEUMATOID ARTHRITIS
     Route: 048
     Dates: start: 20010725, end: 20031115
  3. NOVATREX [Suspect]
     Dosage: UNKNOWN
     Route: 048
     Dates: start: 20040215
  4. CORTANCYL [Suspect]
     Indication: RHEUMATOID ARTHRITIS
     Route: 048
     Dates: start: 20010725

REACTIONS (9)
  - ACTINOMYCOTIC PULMONARY INFECTION [None]
  - ARTHRALGIA [None]
  - CIRCULATORY COLLAPSE [None]
  - EMPHYSEMA [None]
  - INTERSTITIAL LUNG DISEASE [None]
  - LUNG ABSCESS [None]
  - NEISSERIA INFECTION [None]
  - PLEURISY [None]
  - PNEUMONIA STREPTOCOCCAL [None]
